FAERS Safety Report 14426313 (Version 1)
Quarter: 2018Q1

REPORT INFORMATION
  Report Type: Spontaneous
  Country: US (occurrence: US)
  Receive Date: 20180123
  Receipt Date: 20180123
  Transmission Date: 20180509
  Serious: No
  Sender: FDA-Public Use
  Company Number: US-ROCHE-2008492

PATIENT
  Sex: Male

DRUGS (2)
  1. OCREVUS [Suspect]
     Active Substance: OCRELIZUMAB
     Route: 042
     Dates: start: 20170812
  2. OCREVUS [Suspect]
     Active Substance: OCRELIZUMAB
     Indication: RELAPSING-REMITTING MULTIPLE SCLEROSIS
     Route: 042
     Dates: start: 20170825

REACTIONS (6)
  - Vision blurred [Unknown]
  - Clonus [Unknown]
  - Balance disorder [Recovering/Resolving]
  - Fatigue [Recovering/Resolving]
  - Cognitive disorder [Unknown]
  - Memory impairment [Unknown]
